FAERS Safety Report 7464040-0 (Version None)
Quarter: 2011Q2

REPORT INFORMATION
  Report Type: 
  Country: None (occurrence: None)
  Receive Date: 20110506
  Receipt Date: 20101117
  Transmission Date: 20111010
  Serious: No
  Sender: FDA-Public Use
  Company Number: US-BAYER-2010-005908

PATIENT
  Age: 64 Year
  Sex: Female

DRUGS (4)
  1. UNKNOWN DRUG [Concomitant]
     Indication: DIABETES MELLITUS
  2. UNKNOWN DRUG [Concomitant]
     Dosage: UNK
  3. AVELOX [Suspect]
     Indication: SINUSITIS
     Dosage: 400 MG, QD
     Route: 048
     Dates: start: 20101114, end: 20101117
  4. UNKNOWN DRUG [Concomitant]

REACTIONS (1)
  - PARAESTHESIA [None]
